FAERS Safety Report 5359368-4 (Version None)
Quarter: 2007Q2

REPORT INFORMATION
  Report Type: 
  Country: None (occurrence: None)
  Receive Date: 20070615
  Receipt Date: 20070604
  Transmission Date: 20071010
  Serious: Yes (Life-Threatening, Hospitalization, Other)
  Sender: FDA-Public Use
  Company Number: US-PFIZER INC-2007026116

PATIENT
  Sex: Female
  Weight: 111.1 kg

DRUGS (4)
  1. CHANTIX [Suspect]
     Indication: SMOKING CESSATION THERAPY
  2. GABAPENTIN [Suspect]
     Indication: NEURALGIA
  3. ERYTHROMYCIN [Suspect]
  4. CYMBALTA [Concomitant]
     Indication: NEURALGIA

REACTIONS (14)
  - ANOGENITAL WARTS [None]
  - BACK PAIN [None]
  - CYST [None]
  - DEEP VEIN THROMBOSIS [None]
  - FATIGUE [None]
  - HYPOAESTHESIA [None]
  - HYSTERECTOMY [None]
  - INTERVERTEBRAL DISC OPERATION [None]
  - LIPIDS INCREASED [None]
  - PRURITUS [None]
  - SALPINGO-OOPHORECTOMY BILATERAL [None]
  - UTERINE LEIOMYOMA [None]
  - VISION BLURRED [None]
  - WEIGHT DECREASED [None]
